FAERS Safety Report 15533699 (Version 1)
Quarter: 2018Q4

REPORT INFORMATION
  Report Type: Spontaneous
  Country: FR (occurrence: FR)
  Receive Date: 20181019
  Receipt Date: 20181019
  Transmission Date: 20190205
  Serious: Yes (Hospitalization)
  Sender: FDA-Public Use
  Company Number: FR-PFIZER INC-2018414828

PATIENT
  Age: 53 Year
  Sex: Female

DRUGS (5)
  1. FENTANYL. [Concomitant]
     Active Substance: FENTANYL
     Dosage: UNK
     Route: 042
     Dates: start: 20180604, end: 20180611
  2. LYRICA [Concomitant]
     Active Substance: PREGABALIN
     Route: 048
  3. FLUOXETINE [Concomitant]
     Active Substance: FLUOXETINE HYDROCHLORIDE
     Route: 048
  4. LEVOTHYROX [Concomitant]
     Active Substance: LEVOTHYROXINE
     Route: 048
  5. FELDENE [Suspect]
     Active Substance: PIROXICAM
     Indication: BACK PAIN
     Dosage: UNK
     Route: 042
     Dates: start: 20180604, end: 20180611

REACTIONS (3)
  - Haemorrhage [Recovered/Resolved]
  - Melaena [Recovered/Resolved]
  - Peptic ulcer [Recovered/Resolved]

NARRATIVE: CASE EVENT DATE: 20180625
